FAERS Safety Report 16015355 (Version 6)
Quarter: 2019Q2

REPORT INFORMATION
  Report Type: Report from Study
  Country: ES (occurrence: ES)
  Receive Date: 20190228
  Receipt Date: 20190516
  Transmission Date: 20190711
  Serious: Yes (Hospitalization)
  Sender: FDA-Public Use
  Company Number: ES-ROCHE-2271226

PATIENT
  Age: 63 Year
  Sex: Male
  Weight: 54 kg

DRUGS (16)
  1. ONDANSETRON [Concomitant]
     Active Substance: ONDANSETRON
     Route: 065
     Dates: start: 20190220, end: 20190220
  2. INDOMETHACIN [INDOMETACIN] [Concomitant]
     Active Substance: INDOMETHACIN
     Route: 065
     Dates: start: 20190129, end: 20190129
  3. INDOMETHACIN [INDOMETACIN] [Concomitant]
     Active Substance: INDOMETHACIN
     Route: 065
     Dates: start: 20190220, end: 20190220
  4. RANITIDINE. [Concomitant]
     Active Substance: RANITIDINE
     Route: 065
     Dates: start: 20190129, end: 20190129
  5. ATEZOLIZUMAB. [Suspect]
     Active Substance: ATEZOLIZUMAB
     Indication: NON-SMALL CELL LUNG CANCER
     Dosage: DATE OF MOST RECENT DOSE OF ATEZOLIZUMAB PRIOR TO AE ONSET 20/FEB/2019 AT 10:45 HOURS
     Route: 042
     Dates: start: 20190129
  6. PARACETAMOL [Concomitant]
     Active Substance: ACETAMINOPHEN
     Route: 065
     Dates: start: 20190220, end: 20190220
  7. DEXCHLORPHENIRAMINE [Concomitant]
     Active Substance: DEXCHLORPHENIRAMINE
     Route: 065
     Dates: start: 20190129, end: 20190129
  8. ONDANSETRON [Concomitant]
     Active Substance: ONDANSETRON
     Route: 065
     Dates: start: 20190129, end: 20190129
  9. PARACETAMOL [Concomitant]
     Active Substance: ACETAMINOPHEN
     Route: 065
     Dates: start: 20190129, end: 20190129
  10. OMEPRAZOL [OMEPRAZOLE] [Concomitant]
     Route: 065
     Dates: start: 20190220, end: 20190225
  11. RO6874281 (FAP IL2V MAB) [Suspect]
     Active Substance: RO-6874281
     Indication: NON-SMALL CELL LUNG CANCER
     Dosage: DATE OF MOST RECENT DOSE (10 MG) OF RO 6874281 PRIOR TO AE ONSET 20/FEB/2019 AT 12.20 HOURS.
     Route: 042
     Dates: start: 20190129
  12. DEXCHLORPHENIRAMINE [Concomitant]
     Active Substance: DEXCHLORPHENIRAMINE
     Route: 065
     Dates: start: 20190220, end: 20190220
  13. ALPRAZOLAM. [Concomitant]
     Active Substance: ALPRAZOLAM
     Indication: ANXIETY
  14. RANITIDINE. [Concomitant]
     Active Substance: RANITIDINE
     Route: 065
     Dates: start: 20190220, end: 20190220
  15. TIAMAZOL [Concomitant]
     Indication: HYPERTHYROIDISM
  16. BEMIPARIN [Concomitant]
     Active Substance: BEMIPARIN
     Route: 065
     Dates: start: 20190220, end: 20190225

REACTIONS (1)
  - Hepatotoxicity [Recovered/Resolved]

NARRATIVE: CASE EVENT DATE: 20190221
